FAERS Safety Report 6105127-4 (Version None)
Quarter: 2009Q1

REPORT INFORMATION
  Report Type: 
  Country: None (occurrence: None)
  Receive Date: 20090306
  Receipt Date: 20090203
  Transmission Date: 20090719
  Serious: No
  Sender: FDA-Public Use
  Company Number: US-BAYER-200812156BCC

PATIENT
  Age: 73 Year
  Sex: Female
  Weight: 88 kg

DRUGS (8)
  1. ALEVE (CAPLET) [Suspect]
     Indication: ARTHRALGIA
     Route: 048
     Dates: start: 20071101, end: 20080502
  2. ALEVE (CAPLET) [Suspect]
     Route: 048
     Dates: start: 20071101, end: 20080502
  3. ASPIRIN [Concomitant]
  4. ATENOLOL [Concomitant]
  5. HYDROCHLOROTHIAZIDE [Concomitant]
  6. PROZAC [Concomitant]
  7. CALTRATE [Concomitant]
  8. VESICARE [Concomitant]
     Indication: POLLAKIURIA
     Dates: start: 20080428, end: 20080429

REACTIONS (4)
  - DRY EYE [None]
  - DRY MOUTH [None]
  - EPISTAXIS [None]
  - NASAL DRYNESS [None]
